FAERS Safety Report 5677716-2 (Version None)
Quarter: 2008Q1

REPORT INFORMATION
  Report Type: 
  Country: None (occurrence: None)
  Receive Date: 20080324
  Receipt Date: 20080320
  Transmission Date: 20080703
  Serious: Yes (Hospitalization)
  Sender: FDA-Public Use
  Company Number: US-BOEHRINGER INGELHEIM GMBH, GERMANY-2007-BP-24574BP

PATIENT
  Age: 60 Year
  Sex: Male
  Weight: 137 kg

DRUGS (2)
  1. SPIRIVA [Suspect]
     Indication: CHRONIC OBSTRUCTIVE PULMONARY DISEASE
     Route: 055
     Dates: start: 20010101
  2. SPIRIVA [Suspect]
     Indication: POST-TRAUMATIC STRESS DISORDER

REACTIONS (5)
  - BLOOD POTASSIUM INCREASED [None]
  - INFLAMMATION [None]
  - PROSTATIC DISORDER [None]
  - PROSTATOMEGALY [None]
  - PROTEIN TOTAL INCREASED [None]
